FAERS Safety Report 16083463 (Version 1)
Quarter: 2019Q1

REPORT INFORMATION
  Report Type: Spontaneous
  Country: US (occurrence: US)
  Receive Date: 20190318
  Receipt Date: 20190318
  Transmission Date: 20190418
  Serious: Yes (Hospitalization)
  Sender: FDA-Public Use
  Company Number: US-ROCHE-2279252

PATIENT
  Sex: Female
  Weight: 68.95 kg

DRUGS (2)
  1. TAMIFLU [Suspect]
     Active Substance: OSELTAMIVIR PHOSPHATE
     Indication: PRODUCT USED FOR UNKNOWN INDICATION
     Route: 065
  2. XELJANZ [Suspect]
     Active Substance: TOFACITINIB CITRATE
     Indication: PSORIATIC ARTHROPATHY
     Dosage: THE DOSE WAS NOT CHANGED IN RESPONSE TO ADVERSE EVENT.?LOT NUMBER AND EXPIRY DATE: UNKNOWN IT WAS NO
     Route: 048

REACTIONS (1)
  - Influenza [Unknown]
